FAERS Safety Report 8216460-4 (Version None)
Quarter: 2012Q1

REPORT INFORMATION
  Report Type: 
  Country: None (occurrence: None)
  Receive Date: 20120313
  Receipt Date: 20120301
  Transmission Date: 20120608
  Serious: Yes (Life-Threatening, Hospitalization)
  Sender: FDA-Public Use
  Company Number: 2012000037

PATIENT
  Age: 55 Year
  Sex: Male

DRUGS (6)
  1. PLAVIX [Concomitant]
  2. TEMERIT (NEBIVOLOL HYDROCHLORIDE) [Concomitant]
  3. PERINDOPRIL ERBUMINE [Suspect]
     Indication: PRODUCT USED FOR UNKNOWN INDICATION
     Dosage: 10 MG, QD, ORAL
     Route: 048
     Dates: start: 20060101, end: 20111226
  4. VASTAREL (TRIMETAZIDINE HYDROCHLORIDE) [Concomitant]
  5. TIORFAN (ACETORPHAN) [Suspect]
     Indication: DIARRHOEA
     Dosage: 10 MG, SINGLE
     Dates: start: 20111226, end: 20111226
  6. TAHOR (ATORVASTATIN CALICUM) [Concomitant]

REACTIONS (6)
  - ANGIOEDEMA [None]
  - LARYNGOTRACHEAL OEDEMA [None]
  - DIARRHOEA [None]
  - DYSPHONIA [None]
  - DYSPHAGIA [None]
  - DYSPNOEA [None]
